FAERS Safety Report 16696090 (Version 1)
Quarter: 2019Q3

REPORT INFORMATION
  Report Type: Spontaneous
  Country: GB (occurrence: GB)
  Receive Date: 20190813
  Receipt Date: 20190813
  Transmission Date: 20191004
  Serious: Yes (Other)
  Sender: FDA-Public Use
  Company Number: GB-ACCORD-150930

PATIENT
  Age: 57 Year
  Sex: Male
  Weight: 130 kg

DRUGS (16)
  1. INDIPAM SR [Concomitant]
  2. ORAMORPH [Concomitant]
     Active Substance: MORPHINE SULFATE
  3. AMITRIPTYLINE [Concomitant]
     Active Substance: AMITRIPTYLINE
  4. DOXAZOSIN [Suspect]
     Active Substance: DOXAZOSIN MESYLATE
     Indication: HYPERTENSION
     Route: 048
     Dates: start: 2018
  5. SPIRONOLACTONE. [Suspect]
     Active Substance: SPIRONOLACTONE
     Indication: HYPERTENSION
     Route: 048
     Dates: start: 2018
  6. ALOGLIPTIN. [Concomitant]
     Active Substance: ALOGLIPTIN
  7. TRAMADOL. [Concomitant]
     Active Substance: TRAMADOL
  8. WARFARIN [Concomitant]
     Active Substance: WARFARIN
  9. RAMIPRIL. [Concomitant]
     Active Substance: RAMIPRIL
  10. PROPRANOLOL [Concomitant]
     Active Substance: PROPRANOLOL HYDROCHLORIDE
  11. METFORMIN [Concomitant]
     Active Substance: METFORMIN HYDROCHLORIDE
  12. LANSOPRAZOLE. [Concomitant]
     Active Substance: LANSOPRAZOLE
  13. GLICLAZIDE [Concomitant]
     Active Substance: GLICLAZIDE
  14. PARACETAMOL [Concomitant]
     Active Substance: ACETAMINOPHEN
  15. LERCANIDIPINE [Concomitant]
     Active Substance: LERCANIDIPINE
  16. ATORVASTATIN [Concomitant]
     Active Substance: ATORVASTATIN

REACTIONS (3)
  - Breast pain [Not Recovered/Not Resolved]
  - Breast mass [Unknown]
  - Mastitis [Unknown]

NARRATIVE: CASE EVENT DATE: 201905
